FAERS Safety Report 15113935 (Version 2)
Quarter: 2020Q1

REPORT INFORMATION
  Report Type: Spontaneous
  Country: CA (occurrence: CA)
  Receive Date: 20180706
  Receipt Date: 20200323
  Transmission Date: 20200409
  Serious: Yes (Other)
  Sender: FDA-Public Use
  Company Number: CA-ROCHE-2147995

PATIENT
  Age: 8 Year
  Sex: Female
  Weight: 36.5 kg

DRUGS (5)
  1. CHOLECALCIFEROL [Concomitant]
     Active Substance: CHOLECALCIFEROL
     Indication: PRODUCT USED FOR UNKNOWN INDICATION
     Route: 048
  2. PREDNISONE. [Concomitant]
     Active Substance: PREDNISONE
     Route: 065
  3. CELLCEPT [Suspect]
     Active Substance: MYCOPHENOLATE MOFETIL\MYCOPHENOLATE MOFETIL HYDROCHLORIDE
     Indication: NEPHROTIC SYNDROME
     Route: 048
     Dates: start: 2018
  4. RITUXAN [Suspect]
     Active Substance: RITUXIMAB
     Indication: NEPHROTIC SYNDROME
     Route: 041
     Dates: start: 20181004
  5. TACROLIMUS. [Suspect]
     Active Substance: TACROLIMUS
     Indication: PRODUCT USED FOR UNKNOWN INDICATION
     Route: 065

REACTIONS (14)
  - B-lymphocyte count decreased [Unknown]
  - Nephrotic syndrome [Not Recovered/Not Resolved]
  - Weight increased [Unknown]
  - Benign familial haematuria [Not Recovered/Not Resolved]
  - Mood swings [Unknown]
  - Nasopharyngitis [Unknown]
  - Drug intolerance [Unknown]
  - Blood albumin decreased [Unknown]
  - Oedema [Unknown]
  - Off label use [Unknown]
  - Pustule [Unknown]
  - Treatment failure [Unknown]
  - Drug ineffective [Unknown]
  - Intentional product use issue [Unknown]

NARRATIVE: CASE EVENT DATE: 20180515
